FAERS Safety Report 25262267 (Version 1)
Quarter: 2025Q2

REPORT INFORMATION
  Report Type: Spontaneous
  Country: US (occurrence: US)
  Receive Date: 20250502
  Receipt Date: 20250502
  Transmission Date: 20250716
  Serious: Yes (Hospitalization, Other)
  Sender: BRISTOL MYERS SQUIBB
  Company Number: US-BRISTOL-MYERS SQUIBB COMPANY-2025-060666

PATIENT
  Age: 74 Year
  Sex: Female
  Weight: 76.66 kg

DRUGS (1)
  1. POMALYST [Suspect]
     Active Substance: POMALIDOMIDE
     Indication: Plasma cell myeloma
     Dosage: EVERY OTHER DAY FOR 2 WEEKS ON, 2 OFF
     Route: 048
     Dates: start: 202412

REACTIONS (2)
  - Immune system disorder [Recovering/Resolving]
  - Pneumonia [Recovering/Resolving]
